FAERS Safety Report 19473651 (Version 1)
Quarter: 2021Q2

REPORT INFORMATION
  Report Type: Report from Study
  Country: US (occurrence: US)
  Receive Date: 20210629
  Receipt Date: 20210629
  Transmission Date: 20210717
  Serious: Yes (Hospitalization)
  Sender: FDA-Public Use
  Company Number: US-EXELIXIS-CABO-21041791

PATIENT
  Sex: Male

DRUGS (2)
  1. CABOMETYX [Suspect]
     Active Substance: CABOZANTINIB S-MALATE
     Indication: PRODUCT USED FOR UNKNOWN INDICATION
     Dosage: 20 MG, (1 TABLET X 20MG) ALTERNATING WITH 40MG (2 TABLETS X 20MG) EVERY OTHER DAY
     Route: 048
     Dates: start: 202004
  2. CABOMETYX [Suspect]
     Active Substance: CABOZANTINIB S-MALATE
     Dosage: 20 MG, OTHER
     Route: 048
     Dates: start: 20210524

REACTIONS (2)
  - Neoplasm [Unknown]
  - Anaemia [Unknown]
